FAERS Safety Report 6907780-1 (Version None)
Quarter: 2010Q3

REPORT INFORMATION
  Report Type: 
  Country: None (occurrence: None)
  Receive Date: 20100805
  Receipt Date: 20100802
  Transmission Date: 20110219
  Serious: Yes (Death, Other)
  Sender: FDA-Public Use
  Company Number: US-ASTRAZENECA-2007UW08944

PATIENT
  Age: 12809 Day
  Sex: Male
  Weight: 99.8 kg

DRUGS (16)
  1. SEROQUEL [Suspect]
     Indication: HALLUCINATION, AUDITORY
     Dosage: 25 MG TO 200 MG
     Route: 048
     Dates: start: 19980130, end: 20080905
  2. SEROQUEL [Suspect]
     Indication: SCHIZOPHRENIA
     Dosage: 25 MG TO 200 MG
     Route: 048
     Dates: start: 19980130, end: 20080905
  3. SEROQUEL [Suspect]
     Route: 048
     Dates: start: 20010803
  4. SEROQUEL [Suspect]
     Route: 048
     Dates: start: 20010803
  5. SEROQUEL [Suspect]
     Route: 048
     Dates: start: 20040824, end: 20050426
  6. SEROQUEL [Suspect]
     Route: 048
     Dates: start: 20040824, end: 20050426
  7. ZYPREXA [Suspect]
     Indication: SCHIZOPHRENIA
     Dosage: 5MG TO 15 MG
     Dates: start: 19970103, end: 20050228
  8. ZYPREXA [Suspect]
     Dates: start: 19980826
  9. ZYPREXA [Suspect]
     Dates: start: 20011218, end: 20040820
  10. ABILIFY [Concomitant]
     Dates: start: 20041001, end: 20050401
  11. ABILIFY [Concomitant]
     Dates: start: 20050420, end: 20050613
  12. TRILAFON [Concomitant]
     Dates: start: 20050613
  13. RESTORIL [Concomitant]
     Indication: INSOMNIA
     Dates: start: 20010803
  14. GLUCOTROL [Concomitant]
     Route: 048
     Dates: start: 20041213
  15. RISPERDAL [Concomitant]
     Indication: SCHIZOPHRENIA
     Dosage: 1 MG TO 3 MG
     Dates: start: 19970428, end: 19980826
  16. HALDOL [Concomitant]
     Dates: start: 19950401, end: 19960601

REACTIONS (7)
  - ALCOHOLIC PANCREATITIS [None]
  - BLOOD GLUCOSE ABNORMAL [None]
  - DEATH [None]
  - DIABETES MELLITUS [None]
  - PANCREATITIS ACUTE [None]
  - PANCREATITIS RELAPSING [None]
  - TYPE 2 DIABETES MELLITUS [None]
